FAERS Safety Report 5594466-1 (Version None)
Quarter: 2008Q1

REPORT INFORMATION
  Report Type: 
  Country: None (occurrence: None)
  Receive Date: 20080117
  Receipt Date: 20080110
  Transmission Date: 20080703
  Serious: Yes (Hospitalization)
  Sender: FDA-Public Use
  Company Number: FI-JNJFOC-20080102989

PATIENT
  Sex: Female

DRUGS (6)
  1. REMICADE [Suspect]
     Route: 042
  2. REMICADE [Suspect]
     Indication: JUVENILE ARTHRITIS
     Route: 042
  3. METHOTREXATE [Concomitant]
  4. FOLVITE [Concomitant]
  5. CALCI-CHEW [Concomitant]
  6. MOBIC [Concomitant]

REACTIONS (5)
  - DYSPNOEA [None]
  - ERYTHEMA [None]
  - PHARYNGOLARYNGEAL PAIN [None]
  - SUFFOCATION FEELING [None]
  - SWELLING [None]
